FAERS Safety Report 22088522 (Version 4)
Quarter: 2023Q2

REPORT INFORMATION
  Report Type: Report from Study
  Country: US (occurrence: US)
  Receive Date: 20230313
  Receipt Date: 20230620
  Transmission Date: 20230721
  Serious: No
  Sender: FDA-Public Use
  Company Number: US-ACORDA-ACO_174838_2023

PATIENT
  Sex: Female
  Weight: 72.971 kg

DRUGS (3)
  1. AMPYRA [Suspect]
     Active Substance: DALFAMPRIDINE
     Indication: Multiple sclerosis
     Dosage: 10 MILLIGRAM, BID
     Route: 048
  2. KESIMPTA [Suspect]
     Active Substance: OFATUMUMAB
     Indication: Product used for unknown indication
     Dosage: UNK
     Route: 065
  3. TECFIDERA [Concomitant]
     Active Substance: DIMETHYL FUMARATE
     Indication: Product used for unknown indication
     Dosage: UNK
     Route: 065

REACTIONS (9)
  - Abnormal behaviour [Unknown]
  - Personality change [Unknown]
  - Palpitations [Unknown]
  - Panic reaction [Unknown]
  - Feeling abnormal [Unknown]
  - Anxiety [Unknown]
  - Dizziness [Unknown]
  - Dizziness [Unknown]
  - Asthenia [Unknown]
